FAERS Safety Report 22360447 (Version 1)
Quarter: 2023Q2

REPORT INFORMATION
  Report Type: Spontaneous
  Country: US (occurrence: US)
  Receive Date: 20230524
  Receipt Date: 20230524
  Transmission Date: 20230721
  Serious: No
  Sender: FDA-Public Use
  Company Number: US-UCBSA-2022024255

PATIENT
  Age: 50 Year
  Sex: Female

DRUGS (1)
  1. CIMZIA [Suspect]
     Active Substance: CERTOLIZUMAB PEGOL
     Indication: Rheumatoid arthritis
     Dosage: 400 MILLIGRAM, EV 4 WEEKS
     Route: 058
     Dates: start: 20210616

REACTIONS (16)
  - Weight decreased [Unknown]
  - Muscle spasms [Unknown]
  - Skin discolouration [Unknown]
  - Hot flush [Unknown]
  - Alopecia [Unknown]
  - Skin exfoliation [Unknown]
  - Iron deficiency anaemia [Unknown]
  - Skin disorder [Unknown]
  - Asthenia [Unknown]
  - Fatigue [Unknown]
  - C-reactive protein increased [Unknown]
  - Hypoaesthesia [Unknown]
  - Hormone replacement therapy [Unknown]
  - Neuralgia [Unknown]
  - Inflammation [Unknown]
  - Product dose omission issue [Unknown]

NARRATIVE: CASE EVENT DATE: 20220601
